FAERS Safety Report 19687216 (Version 4)
Quarter: 2022Q4

REPORT INFORMATION
  Report Type: Spontaneous
  Country: US (occurrence: US)
  Receive Date: 20210811
  Receipt Date: 20221122
  Transmission Date: 20230113
  Serious: No
  Sender: FDA-Public Use
  Company Number: US-PFIZER INC-202100963192

PATIENT
  Age: 57 Year
  Sex: Female

DRUGS (8)
  1. IBRANCE [Suspect]
     Active Substance: PALBOCICLIB
     Dosage: 125 MG
     Dates: start: 20210701
  2. IBRANCE [Suspect]
     Active Substance: PALBOCICLIB
     Dosage: 125 MG
     Dates: start: 20210704
  3. IBRANCE [Suspect]
     Active Substance: PALBOCICLIB
     Dosage: 125 MG
     Dates: start: 20210705
  4. IBRANCE [Suspect]
     Active Substance: PALBOCICLIB
     Dosage: 125 MG
     Dates: start: 20210706
  5. IBRANCE [Suspect]
     Active Substance: PALBOCICLIB
     Dosage: 125 MG
     Dates: start: 20210711
  6. IBRANCE [Suspect]
     Active Substance: PALBOCICLIB
     Dosage: 125 MG
     Dates: start: 20210721
  7. IBRANCE [Suspect]
     Active Substance: PALBOCICLIB
     Dosage: 125 MG
     Dates: start: 20210806
  8. IBRANCE [Suspect]
     Active Substance: PALBOCICLIB
     Dosage: 125 MG
     Dates: start: 20211101

REACTIONS (16)
  - Product dose omission issue [Unknown]
  - Anaemia [Unknown]
  - Asthenia [Unknown]
  - Diarrhoea [Unknown]
  - Abdominal discomfort [Unknown]
  - Alopecia [Unknown]
  - Fatigue [Recovering/Resolving]
  - Memory impairment [Unknown]
  - Pruritus [Recovering/Resolving]
  - Erythema [Recovering/Resolving]
  - Vision blurred [Unknown]
  - Onychoclasis [Unknown]
  - Vomiting [Unknown]
  - Aphthous ulcer [Unknown]
  - Weight increased [Unknown]
  - Seasonal allergy [Unknown]
